FAERS Safety Report 13110580 (Version 1)
Quarter: 2017Q1

REPORT INFORMATION
  Report Type: Spontaneous
  Country: US (occurrence: US)
  Receive Date: 20170112
  Receipt Date: 20170112
  Transmission Date: 20170428
  Serious: Yes (Death)
  Sender: FDA-Public Use
  Company Number: US-ROCHE-GNE305746

PATIENT
  Sex: Female
  Weight: 59.96 kg

DRUGS (2)
  1. TYLENOL [Concomitant]
     Active Substance: ACETAMINOPHEN
     Indication: PRODUCT USED FOR UNKNOWN INDICATION
     Dosage: 650 MG, UNK
     Route: 065
     Dates: start: 20100818
  2. ACTIVASE [Suspect]
     Active Substance: ALTEPLASE
     Indication: ISCHAEMIC STROKE
     Dosage: 54 MG, SINGLE
     Route: 042
     Dates: start: 20100817

REACTIONS (1)
  - Haemorrhage intracranial [Fatal]
